FAERS Safety Report 16974881 (Version 1)
Quarter: 2019Q4

REPORT INFORMATION
  Report Type: Spontaneous
  Country: US (occurrence: US)
  Receive Date: 20191030
  Receipt Date: 20191030
  Transmission Date: 20200122
  Serious: Yes (Other)
  Sender: FDA-Public Use
  Company Number: US-NOVOPROD-692869

PATIENT
  Age: 66 Year
  Sex: Female

DRUGS (2)
  1. TRESIBA [Suspect]
     Active Substance: INSULIN DEGLUDEC
     Indication: DIABETES MELLITUS
     Dosage: 35 IU, QD (AT NIGHT)
     Route: 058
     Dates: start: 2019
  2. TRESIBA [Suspect]
     Active Substance: INSULIN DEGLUDEC
     Dosage: DECREASED TO SLIDING SCALE
     Route: 058

REACTIONS (6)
  - Renal failure [Unknown]
  - Blood glucose increased [Recovered/Resolved]
  - Blood glucose decreased [Unknown]
  - Injection site haemorrhage [Unknown]
  - Weight decreased [Unknown]
  - Injection site hypertrophy [Unknown]

NARRATIVE: CASE EVENT DATE: 2019
